FAERS Safety Report 10188092 (Version 2)
Quarter: 2014Q2

REPORT INFORMATION
  Report Type: Spontaneous
  Country: GB (occurrence: GB)
  Receive Date: 20140522
  Receipt Date: 20140522
  Transmission Date: 20141212
  Serious: Yes (Disabling)
  Sender: FDA-Public Use
  Company Number: GB-TEVA-419896ISR

PATIENT
  Age: 59 Year
  Sex: Male
  Weight: 99.5 kg

DRUGS (9)
  1. NAPROXEN [Suspect]
     Indication: PAIN
     Route: 048
  2. MABTHERA [Suspect]
     Indication: RHEUMATOID ARTHRITIS
     Dosage: 2 INFUSION 2 WEEKS APART
     Route: 042
     Dates: start: 20130515
  3. MABTHERA [Suspect]
     Route: 065
     Dates: start: 20130528
  4. CHLORAMPHENICOL [Suspect]
     Indication: PRODUCT USED FOR UNKNOWN INDICATION
     Dosage: EYE OINTMENT
     Route: 065
  5. METOJECT [Suspect]
     Indication: RHEUMATOID ARTHRITIS
     Route: 058
     Dates: end: 20130529
  6. CODEINE [Concomitant]
     Indication: PRODUCT USED FOR UNKNOWN INDICATION
     Route: 065
  7. OMEPRAZOLE [Concomitant]
     Indication: PROPHYLAXIS
     Route: 048
  8. FOLIC ACID [Concomitant]
     Indication: PRODUCT USED FOR UNKNOWN INDICATION
     Route: 065
  9. PARACETAMOL [Concomitant]
     Indication: PAIN

REACTIONS (1)
  - Infection [Not Recovered/Not Resolved]
